FAERS Safety Report 9918635 (Version 1)
Quarter: 2014Q1

REPORT INFORMATION
  Report Type: Spontaneous
  Country: US (occurrence: US)
  Receive Date: 20140224
  Receipt Date: 20140224
  Transmission Date: 20141002
  Serious: No
  Sender: FDA-Public Use
  Company Number: US-009507513-1402USA008909

PATIENT
  Sex: 0

DRUGS (1)
  1. ZOCOR [Suspect]
     Dosage: UNK
     Route: 048

REACTIONS (1)
  - Back pain [Unknown]
